FAERS Safety Report 9728457 (Version 5)
Quarter: 2014Q1

REPORT INFORMATION
  Report Type: Spontaneous
  Country: GB (occurrence: GB)
  Receive Date: 20131204
  Receipt Date: 20140130
  Transmission Date: 20141002
  Serious: Yes (Hospitalization, Other)
  Sender: FDA-Public Use
  Company Number: GB-PFIZER INC-2013339920

PATIENT
  Age: 62 Year
  Sex: Female

DRUGS (6)
  1. LYRICA [Suspect]
     Indication: NEURALGIA
     Dosage: 100 MG, 2X/DAY
     Route: 065
  2. LYRICA [Interacting]
     Dosage: 100 MG, 1X/DAY
  3. PERINDOPRIL [Interacting]
  4. FUROSEMIDE [Concomitant]
     Dosage: 40 MG, UNK
     Route: 065
  5. LIDOCAINE [Concomitant]
  6. DABIGATRAN [Concomitant]

REACTIONS (14)
  - Drug interaction [Unknown]
  - Cardiac failure congestive [Unknown]
  - Cardiomyopathy [Unknown]
  - Atrial fibrillation [Unknown]
  - Drug ineffective [Unknown]
  - Memory impairment [Unknown]
  - Nerve injury [Unknown]
  - Skin sensitisation [Unknown]
  - Skin irritation [Unknown]
  - Depression [Unknown]
  - Disturbance in attention [Unknown]
  - Asthenia [Unknown]
  - Nervous system disorder [Unknown]
  - Visual acuity reduced [Unknown]
